FAERS Safety Report 11977908 (Version 1)
Quarter: 2016Q1

REPORT INFORMATION
  Report Type: Spontaneous
  Country: MX (occurrence: MX)
  Receive Date: 20160129
  Receipt Date: 20160129
  Transmission Date: 20160526
  Serious: Yes (Hospitalization)
  Sender: FDA-Public Use
  Company Number: MX-FERRINGPH-2016FE00365

PATIENT

DRUGS (2)
  1. LYSTEDA [Suspect]
     Active Substance: TRANEXAMIC ACID
     Indication: METRORRHAGIA
     Dosage: 1300 MG, 2 TIMES DAILY
     Route: 048
     Dates: start: 20151102, end: 20151106
  2. INDOCID                            /00003801/ [Concomitant]
     Active Substance: INDOMETHACIN
     Indication: METRORRHAGIA
     Dosage: 100 MG, 2 TIMES DAILY
     Route: 048
     Dates: start: 20151102, end: 20151104

REACTIONS (4)
  - Dyspnoea [Recovered/Resolved]
  - Tachycardia [Recovered/Resolved]
  - Chest pain [Recovered/Resolved]
  - Product use issue [Recovered/Resolved]

NARRATIVE: CASE EVENT DATE: 20151102
